FAERS Safety Report 18264854 (Version 1)
Quarter: 2020Q3

REPORT INFORMATION
  Report Type: Spontaneous
  Country: BR (occurrence: BR)
  Receive Date: 20200914
  Receipt Date: 20200914
  Transmission Date: 20201103
  Serious: Yes (Death, Other)
  Sender: FDA-Public Use
  Company Number: NVSC2020BR250392

PATIENT
  Age: 61 Year
  Sex: Female

DRUGS (1)
  1. DIOVAN AMLO FIX [Suspect]
     Active Substance: AMLODIPINE\VALSARTAN
     Indication: HYPERTENSION
     Dosage: 1 DF (160/5 MG), QD, STARTED ABOUT 10 YEARS AGO
     Route: 048

REACTIONS (7)
  - Head injury [Not Recovered/Not Resolved]
  - Coagulopathy [Not Recovered/Not Resolved]
  - Disseminated intravascular coagulation [Fatal]
  - Blood viscosity increased [Not Recovered/Not Resolved]
  - Fall [Not Recovered/Not Resolved]
  - Blood urine present [Not Recovered/Not Resolved]
  - Blood viscosity decreased [Not Recovered/Not Resolved]

NARRATIVE: CASE EVENT DATE: 19861022
